FAERS Safety Report 12906900 (Version 1)
Quarter: 2016Q4

REPORT INFORMATION
  Report Type: Spontaneous
  Country: US (occurrence: US)
  Receive Date: 20161103
  Receipt Date: 20161103
  Transmission Date: 20170207
  Serious: Yes (Death, Hospitalization)
  Sender: FDA-Public Use
  Company Number: US-PFIZER INC-2016510166

PATIENT
  Age: 51 Year
  Sex: Female
  Weight: 54.43 kg

DRUGS (1)
  1. LYRICA [Suspect]
     Active Substance: PREGABALIN
     Indication: BACK PAIN
     Dosage: UNK
     Dates: start: 2015, end: 201504

REACTIONS (6)
  - Hypersensitivity [Unknown]
  - Gait disturbance [Unknown]
  - Lung disorder [Fatal]
  - Dyspnoea [Unknown]
  - Chronic obstructive pulmonary disease [Fatal]
  - Condition aggravated [Unknown]

NARRATIVE: CASE EVENT DATE: 2015
